FAERS Safety Report 5132243-6 (Version None)
Quarter: 2006Q4

REPORT INFORMATION
  Report Type: 
  Country: None (occurrence: None)
  Receive Date: 20061017
  Receipt Date: 20061011
  Transmission Date: 20070319
  Serious: Yes (Death)
  Sender: FDA-Public Use
  Company Number: 163-20785-06090202

PATIENT
  Sex: Female

DRUGS (2)
  1. THALOMID [Suspect]
     Indication: MALIGNANT NEOPLASM OF UTERINE ADNEXA
     Dosage: 150 MG, DAILY, ORAL
     Route: 048
  2. THALOMID [Suspect]

REACTIONS (3)
  - MALIGNANT NEOPLASM PROGRESSION [None]
  - OVARIAN CANCER [None]
  - SOMNOLENCE [None]
